FAERS Safety Report 11222416 (Version 1)
Quarter: 2015Q2

REPORT INFORMATION
  Report Type: Spontaneous
  Country: BR (occurrence: BR)
  Receive Date: 20150626
  Receipt Date: 20150626
  Transmission Date: 20150821
  Serious: Yes (Other)
  Sender: FDA-Public Use
  Company Number: BR-ASTRAZENECA-2015SE62221

PATIENT
  Age: 67 Year
  Sex: Female
  Weight: 73 kg

DRUGS (11)
  1. CLOPIDOGREL [Concomitant]
     Active Substance: CLOPIDOGREL BISULFATE
     Indication: POOR PERIPHERAL CIRCULATION
  2. ROSUVASTATIN [Suspect]
     Active Substance: ROSUVASTATIN
     Indication: BLOOD CHOLESTEROL ABNORMAL
     Route: 048
     Dates: start: 2009
  3. COMPOUNDED MEDICATION (METOPROLOL; LOSARTAN; AMLODIPINE AND CHLORTHALI [Suspect]
     Active Substance: AMLODIPINE\CHLORTHALIDONE\LOSARTAN\METOPROLOL
     Indication: BLOOD PRESSURE INADEQUATELY CONTROLLED
     Route: 048
     Dates: start: 2010
  4. ZENAFRON [Concomitant]
     Indication: POOR PERIPHERAL CIRCULATION
     Route: 048
  5. DAONIL [Concomitant]
     Active Substance: GLYBURIDE
     Indication: DIABETES MELLITUS
     Dates: start: 2011, end: 2011
  6. NPH INSULIN [Concomitant]
     Active Substance: INSULIN BEEF
     Indication: DIABETES MELLITUS
     Dates: start: 2011
  7. VASOGARD [Concomitant]
     Active Substance: CILOSTAZOL
     Indication: POOR PERIPHERAL CIRCULATION
     Route: 048
  8. AMYTRIL [Concomitant]
     Active Substance: AMITRIPTYLINE HYDROCHLORIDE
     Indication: DIABETIC NEUROPATHY
     Route: 048
  9. OMEPRAZOLE. [Suspect]
     Active Substance: OMEPRAZOLE
     Indication: GASTRIC DISORDER
     Route: 048
  10. METFORMIN [Suspect]
     Active Substance: METFORMIN HYDROCHLORIDE
     Indication: DIABETES MELLITUS
     Dosage: NON-ASTRAZENECA PRODUCT
     Route: 048
     Dates: start: 2011, end: 20150609
  11. THIOCTACID [Concomitant]
     Active Substance: .ALPHA.-LIPOIC ACID
     Indication: POOR PERIPHERAL CIRCULATION
     Route: 042

REACTIONS (5)
  - Diabetes mellitus [Recovered/Resolved]
  - Renal disorder [Not Recovered/Not Resolved]
  - Blister [Not Recovered/Not Resolved]
  - Hyperglycaemia [Not Recovered/Not Resolved]
  - Blood cholesterol increased [Recovered/Resolved]

NARRATIVE: CASE EVENT DATE: 2009
